FAERS Safety Report 18350278 (Version 1)
Quarter: 2020Q4

REPORT INFORMATION
  Report Type: Spontaneous
  Country: FR (occurrence: FR)
  Receive Date: 20201006
  Receipt Date: 20201006
  Transmission Date: 20210114
  Serious: Yes (Hospitalization)
  Sender: FDA-Public Use
  Company Number: NVSC2020FR263181

PATIENT
  Age: 88 Year
  Sex: Female
  Weight: 82 kg

DRUGS (5)
  1. SERESTA [Suspect]
     Active Substance: OXAZEPAM
     Indication: MEDICATION ERROR
     Dosage: 50 MG (COMPRIM? S?CABLE)
     Route: 048
     Dates: start: 20200906, end: 20200906
  2. PARACETAMOL SANDOZ 1 G [Suspect]
     Active Substance: ACETAMINOPHEN
     Indication: MEDICATION ERROR
     Dosage: 1 G
     Route: 048
     Dates: start: 20200906, end: 20200906
  3. TIAPRIDE [Suspect]
     Active Substance: TIAPRIDE
     Indication: MEDICATION ERROR
     Dosage: 150 MG
     Route: 048
     Dates: start: 20200906, end: 20200906
  4. GABAPENTIN. [Suspect]
     Active Substance: GABAPENTIN
     Indication: MEDICATION ERROR
     Dosage: 300 MG
     Route: 048
     Dates: start: 20200906, end: 20200906
  5. MIANSERIN [Suspect]
     Active Substance: MIANSERIN
     Indication: MEDICATION ERROR
     Dosage: 90 MG
     Route: 048
     Dates: start: 20200906, end: 20200906

REACTIONS (3)
  - Confusional state [Recovering/Resolving]
  - Pneumonia aspiration [Recovering/Resolving]
  - Wrong patient received product [Recovered/Resolved]

NARRATIVE: CASE EVENT DATE: 20200906
